FAERS Safety Report 19275877 (Version 1)
Quarter: 2021Q2

REPORT INFORMATION
  Report Type: Spontaneous
  Country: US (occurrence: US)
  Receive Date: 20210519
  Receipt Date: 20210519
  Transmission Date: 20210717
  Serious: No
  Sender: FDA-Public Use
  Company Number: US-CIPLA LTD.-2021US01683

PATIENT

DRUGS (2)
  1. DICLOFENAC [Suspect]
     Active Substance: DICLOFENAC
     Dosage: 2 GRAM, PRN (2 TO 3 TIMES A DAY, AS NEEDED)
     Route: 061
  2. DICLOFENAC [Suspect]
     Active Substance: DICLOFENAC
     Indication: ARTHRITIS
     Dosage: 2 GRAM, PRN (2 TO 3 TIMES A DAY, AS NEEDED)
     Route: 061
     Dates: start: 2020

REACTIONS (7)
  - Product odour abnormal [Unknown]
  - Drug ineffective [Unknown]
  - Product physical issue [Unknown]
  - Dermal absorption impaired [Unknown]
  - Off label use [Unknown]
  - Product quality issue [Unknown]
  - Product use in unapproved indication [Unknown]

NARRATIVE: CASE EVENT DATE: 2020
